FAERS Safety Report 6100033-3 (Version None)
Quarter: 2009Q1

REPORT INFORMATION
  Report Type: 
  Country: None (occurrence: None)
  Receive Date: 20090303
  Receipt Date: 20090227
  Transmission Date: 20090719
  Serious: Yes (Other)
  Sender: FDA-Public Use
  Company Number: B0559434A

PATIENT
  Age: 11 Year
  Sex: Male
  Weight: 35 kg

DRUGS (6)
  1. RELENZA [Suspect]
     Indication: INFLUENZA
     Dosage: 10MG TWICE PER DAY
     Route: 055
     Dates: start: 20090207, end: 20090211
  2. CLARITHROMYCIN [Concomitant]
     Dosage: 1.75G TWICE PER DAY
     Route: 048
     Dates: start: 20090205, end: 20090208
  3. CALONAL [Concomitant]
     Dosage: 800MG PER DAY
     Route: 048
     Dates: start: 20090205, end: 20090208
  4. ASTOMIN [Concomitant]
     Route: 048
     Dates: start: 20090206, end: 20090208
  5. VACCINATION UNKNOWN [Concomitant]
     Dates: start: 20081028, end: 20081028
  6. VACCINATION UNKNOWN [Concomitant]
     Dates: start: 20081111, end: 20081111

REACTIONS (3)
  - ABNORMAL BEHAVIOUR [None]
  - ANOREXIA [None]
  - DYSSTASIA [None]
